FAERS Safety Report 25487858 (Version 2)
Quarter: 2025Q3

REPORT INFORMATION
  Report Type: Spontaneous
  Country: GB (occurrence: GB)
  Receive Date: 20250627
  Receipt Date: 20250712
  Transmission Date: 20251021
  Serious: Yes (Hospitalization, Other)
  Sender: ADVANZ PHARMA
  Company Number: GB-ADVANZ PHARMA-202506004827

PATIENT

DRUGS (5)
  1. PREDNISOLONE [Suspect]
     Active Substance: PREDNISOLONE
     Indication: Takayasu^s arteritis
  2. PREDNISOLONE [Suspect]
     Active Substance: PREDNISOLONE
  3. ASPIRIN [Suspect]
     Active Substance: ASPIRIN
     Indication: Takayasu^s arteritis
  4. METOPROLOL [Suspect]
     Active Substance: METOPROLOL
     Indication: Takayasu^s arteritis
  5. METOPROLOL [Suspect]
     Active Substance: METOPROLOL

REACTIONS (2)
  - Gestational diabetes [Recovered/Resolved]
  - Exposure during pregnancy [Recovered/Resolved]

NARRATIVE: CASE EVENT DATE: 20230101
